FAERS Safety Report 7798044-5 (Version None)
Quarter: 2011Q4

REPORT INFORMATION
  Report Type: 
  Country: None (occurrence: None)
  Receive Date: 20111005
  Receipt Date: 20110922
  Transmission Date: 20120403
  Serious: Yes (Death, Hospitalization)
  Sender: FDA-Public Use
  Company Number: US-CELGENEUS-163-21880-11071879

PATIENT
  Sex: Female
  Weight: 78.088 kg

DRUGS (6)
  1. MORPHINE SULFATE [Concomitant]
     Route: 065
  2. REVLIMID [Suspect]
     Indication: MULTIPLE MYELOMA
     Dosage: 25 MILLIGRAM
     Route: 048
     Dates: start: 20101116, end: 20110701
  3. DURAGESIC-100 [Concomitant]
     Route: 065
  4. TOPROL-XL [Concomitant]
     Route: 065
  5. PROCARDIA [Concomitant]
     Route: 065
  6. LORTAB [Concomitant]
     Route: 065

REACTIONS (3)
  - MULTIPLE MYELOMA [None]
  - DRUG INEFFECTIVE [None]
  - ANAEMIA [None]
